FAERS Safety Report 4390029-4 (Version None)
Quarter: 2004Q2

REPORT INFORMATION
  Report Type: 
  Country: None (occurrence: None)
  Receive Date: 20040630
  Receipt Date: 20040617
  Transmission Date: 20050107
  Serious: Yes (Death)
  Sender: FDA-Public Use
  Company Number: 2004027684

PATIENT
  Sex: Female

DRUGS (3)
  1. GEODON [Suspect]
     Indication: SCHIZOPHRENIA
     Dosage: 80 MG (1 IN 1), ORAL
     Route: 048
     Dates: start: 20020808
  2. CHLORPROMAZINE [Concomitant]
  3. CARBAMAZEPINE [Concomitant]

REACTIONS (5)
  - COMPLICATIONS OF MATERNAL EXPOSURE TO THERAPEUTIC DRUGS [None]
  - ECLAMPSIA [None]
  - INFECTION [None]
  - POSTPARTUM DISORDER [None]
  - PREGNANCY [None]
